FAERS Safety Report 25382004 (Version 1)
Quarter: 2025Q2

REPORT INFORMATION
  Report Type: Spontaneous
  Country: IN (occurrence: IN)
  Receive Date: 20250531
  Receipt Date: 20250531
  Transmission Date: 20250716
  Serious: Yes (Other)
  Sender: HETERO
  Company Number: IN-HETERO-HET2025IN02711

PATIENT
  Age: 25 Year
  Sex: Male

DRUGS (2)
  1. PREGABALIN [Suspect]
     Active Substance: PREGABALIN
     Indication: Spinal osteoarthritis
     Route: 065
  2. PREGABALIN [Suspect]
     Active Substance: PREGABALIN
     Route: 065

REACTIONS (5)
  - Suicide attempt [Recovering/Resolving]
  - Drug dependence [Recovering/Resolving]
  - Feeling of despair [Recovering/Resolving]
  - Drug abuse [Unknown]
  - Intentional overdose [Unknown]
